FAERS Safety Report 4994756-7 (Version None)
Quarter: 2006Q1

REPORT INFORMATION
  Report Type: 
  Country: None (occurrence: None)
  Receive Date: 20060313
  Receipt Date: 20050428
  Transmission Date: 20060701
  Serious: Yes (Other)
  Sender: FDA-Public Use
  Company Number: PHEH2005US04938

PATIENT
  Sex: Female

DRUGS (1)
  1. TRILEPTAL [Suspect]
     Dates: start: 20040101, end: 20040101

REACTIONS (5)
  - BLOOD TRIGLYCERIDES INCREASED [None]
  - HYPERHIDROSIS [None]
  - HYPERTENSION [None]
  - INCREASED TENDENCY TO BRUISE [None]
  - TREMOR [None]
